FAERS Safety Report 16567288 (Version 1)
Quarter: 2019Q3

REPORT INFORMATION
  Report Type: Spontaneous
  Country: US (occurrence: US)
  Receive Date: 20190712
  Receipt Date: 20190712
  Transmission Date: 20191004
  Serious: No
  Sender: FDA-Public Use
  Company Number: US-TEVA-2019-US-1075586

PATIENT
  Sex: Male

DRUGS (1)
  1. LOXAPINE. [Suspect]
     Active Substance: LOXAPINE
     Indication: SCHIZOPHRENIA
     Dosage: TWO 5 MG CAPSULES ON ODD DAYS AND THREE 5 MG CAPSULES ON EVEN DAYS ONCE AT NIGHT
     Route: 065
     Dates: start: 2018

REACTIONS (4)
  - Constipation [Unknown]
  - Balance disorder [Unknown]
  - Feeling abnormal [Unknown]
  - Product substitution issue [Unknown]
